FAERS Safety Report 24159931 (Version 2)
Quarter: 2024Q3

REPORT INFORMATION
  Report Type: Spontaneous
  Country: US (occurrence: US)
  Receive Date: 20240731
  Receipt Date: 20240813
  Transmission Date: 20241017
  Serious: Yes (Other)
  Sender: HLS THERAPEUTICS
  Company Number: US-HLS-202400498

PATIENT
  Sex: Female

DRUGS (1)
  1. CLOZARIL [Suspect]
     Active Substance: CLOZAPINE
     Indication: Product used for unknown indication
     Dosage: 900MG = 200MG IN THE MORNING+ 300MG IN THE AFTERNOON + 400MG AT BEDTIME
     Route: 065

REACTIONS (5)
  - Agitation [Unknown]
  - Crying [Unknown]
  - Irritability [Unknown]
  - Malaise [Unknown]
  - Urinary tract infection [Unknown]
